FAERS Safety Report 22188961 (Version 2)
Quarter: 2023Q2

REPORT INFORMATION
  Report Type: Spontaneous
  Country: US (occurrence: US)
  Receive Date: 20230409
  Receipt Date: 20230612
  Transmission Date: 20230722
  Serious: No
  Sender: FDA-Public Use
  Company Number: US-ABBVIE-4721932

PATIENT
  Age: 70 Year
  Sex: Female
  Weight: 62.595 kg

DRUGS (2)
  1. CREON [Suspect]
     Active Substance: PANCRELIPASE AMYLASE\PANCRELIPASE LIPASE\PANCRELIPASE PROTEASE
     Indication: Diabetes mellitus
     Dosage: DOSE/FREQUENCY: 36,000 UNIT CAPSULE- TAKE 1 CAPSULE BY MOUTH AT BREAKFAST TAKE 2 CAPSULES BY MOUT...
     Route: 048
  2. INSULIN NOS [Concomitant]
     Active Substance: INSULIN NOS
     Indication: Product used for unknown indication

REACTIONS (1)
  - Malaise [Recovered/Resolved]

NARRATIVE: CASE EVENT DATE: 20230301
